FAERS Safety Report 23949127 (Version 1)
Quarter: 2024Q2

REPORT INFORMATION
  Report Type: Spontaneous
  Country: HU (occurrence: HU)
  Receive Date: 20240607
  Receipt Date: 20240607
  Transmission Date: 20240716
  Serious: Yes (Other)
  Sender: FDA-Public Use
  Company Number: None

PATIENT

DRUGS (7)
  1. CARBAGLU [Suspect]
     Active Substance: CARGLUMIC ACID
     Indication: Propionic acidaemia
     Dosage: 100 MG, QID (HALF TABLET FOUR TIMES)
     Route: 048
     Dates: start: 20120112
  2. CARBAGLU [Suspect]
     Active Substance: CARGLUMIC ACID
     Dosage: 200 MG, QID (ONE TABLET FOUR TIMES)
     Route: 048
     Dates: start: 202112, end: 20220815
  3. CARBAGLU [Suspect]
     Active Substance: CARGLUMIC ACID
     Dosage: 100 MG, Q6H
     Route: 048
     Dates: end: 20230409
  4. CARBAGLU [Suspect]
     Active Substance: CARGLUMIC ACID
     Dosage: 100 MG, TID
     Route: 048
     Dates: start: 20230912
  5. MYOQINON [Concomitant]
     Indication: Propionic acidaemia
     Dosage: CAPSULE, SOFT
     Route: 048
     Dates: start: 20150101, end: 20230827
  6. CITROKALCIUM [Concomitant]
     Indication: Propionic acidaemia
     Dosage: TABLET
     Route: 048
     Dates: start: 20190101, end: 20230827
  7. OMACOR [Concomitant]
     Active Substance: OMEGA-3-ACID ETHYL ESTERS
     Indication: Propionic acidaemia
     Dosage: CAPSULE, SOFT
     Route: 048
     Dates: start: 20150101, end: 202308

REACTIONS (4)
  - Muscle fatigue [Recovered/Resolved]
  - Pallor [Recovered/Resolved]
  - Fatigue [Recovered/Resolved]
  - Vomiting [Recovered/Resolved]

NARRATIVE: CASE EVENT DATE: 20220201
